FAERS Safety Report 8955697 (Version 1)
Quarter: 2012Q4

REPORT INFORMATION
  Report Type: 
  Country: JP (occurrence: JP)
  Receive Date: 20121207
  Receipt Date: 20121207
  Transmission Date: 20130627
  Serious: Yes (Hospitalization)
  Sender: FDA-Public Use
  Company Number: JP-009507513-2012SP021385

PATIENT
  Age: 50 Year
  Sex: Male
  Weight: 82.4 kg

DRUGS (55)
  1. PEGINTERFERON ALFA-2B [Suspect]
     Indication: CHRONIC HEPATITIS C
     Dosage: 120 ?g, QW
     Route: 058
     Dates: start: 20120104, end: 20120104
  2. PEGINTERFERON ALFA-2B [Suspect]
     Dosage: 120 ?g, QW
     Route: 058
     Dates: start: 20120111, end: 20120111
  3. PEGINTERFERON ALFA-2B [Suspect]
     Dosage: 120 ?g, QW
     Route: 058
     Dates: start: 20120118, end: 20120118
  4. PEGINTERFERON ALFA-2B [Suspect]
     Dosage: 120 ?g, QW
     Route: 058
     Dates: start: 20120125, end: 20120125
  5. PEGINTERFERON ALFA-2B [Suspect]
     Dosage: 120 ?g, QW
     Route: 058
     Dates: start: 20120201, end: 20120201
  6. PEGINTERFERON ALFA-2B [Suspect]
     Dosage: 120 ?g, QW
     Route: 058
     Dates: start: 20120208, end: 20120208
  7. PEGINTERFERON ALFA-2B [Suspect]
     Dosage: 120 ?g, QW
     Route: 058
     Dates: start: 20120215, end: 20120215
  8. PEGINTERFERON ALFA-2B [Suspect]
     Dosage: 120 ?g, QW
     Route: 058
     Dates: start: 20120222, end: 20120222
  9. PEGINTERFERON ALFA-2B [Suspect]
     Dosage: 120 ?g, QW
     Route: 058
     Dates: start: 20120229, end: 20120229
  10. PEGINTERFERON ALFA-2B [Suspect]
     Dosage: 120 ?g, QW
     Route: 058
     Dates: start: 20120307, end: 20120307
  11. PEGINTERFERON ALFA-2B [Suspect]
     Dosage: 120 ?g, QW
     Route: 058
     Dates: start: 20120314, end: 20120314
  12. PEGINTERFERON ALFA-2B [Suspect]
     Dosage: 120 ?g, QW
     Route: 058
     Dates: start: 20120321, end: 20120321
  13. PEGINTERFERON ALFA-2B [Suspect]
     Dosage: 120 ?g, QW
     Route: 058
     Dates: start: 20120328, end: 20120328
  14. PEGINTERFERON ALFA-2B [Suspect]
     Dosage: 120 ?g, QW
     Route: 058
     Dates: start: 20120404, end: 20120404
  15. PEGINTERFERON ALFA-2B [Suspect]
     Dosage: 120 ?g, QW
     Route: 058
     Dates: start: 20120411, end: 20120411
  16. PEGINTERFERON ALFA-2B [Suspect]
     Dosage: 120 ?g, QW
     Route: 058
     Dates: start: 20120418, end: 20120418
  17. PEGINTERFERON ALFA-2B [Suspect]
     Dosage: 120 ?g, QW
     Route: 058
     Dates: start: 20120501, end: 20120501
  18. MK-8908 [Suspect]
     Indication: CHRONIC HEPATITIS C
     Dosage: 1000 mg, QD
     Route: 048
     Dates: start: 20120104, end: 20120104
  19. MK-8908 [Suspect]
     Dosage: UNK UNK, Unknown
     Route: 048
     Dates: start: 20120104, end: 20120110
  20. MK-8908 [Suspect]
     Dosage: UNK UNK, Unknown
     Route: 048
     Dates: start: 20120105, end: 20120111
  21. MK-8908 [Suspect]
     Dosage: UNK UNK, Unknown
     Route: 048
     Dates: start: 20120111, end: 20120117
  22. MK-8908 [Suspect]
     Dosage: UNK UNK, Unknown
     Route: 048
     Dates: start: 20120112, end: 20120118
  23. MK-8908 [Suspect]
     Dosage: UNK UNK, Unknown
     Route: 048
     Dates: start: 20120118, end: 20120124
  24. MK-8908 [Suspect]
     Dosage: UNK UNK, Unknown
     Route: 048
     Dates: start: 20120119, end: 20120125
  25. MK-8908 [Suspect]
     Dosage: UNK UNK, Unknown
     Route: 048
     Dates: start: 20120125, end: 20120131
  26. MK-8908 [Suspect]
     Dosage: UNK UNK, Unknown
     Route: 048
     Dates: start: 20120126, end: 20120131
  27. MK-8908 [Suspect]
     Dosage: UNK UNK, Unknown
     Route: 048
     Dates: start: 20120201, end: 20120208
  28. MK-8908 [Suspect]
     Dosage: UNK UNK, Unknown
     Route: 048
     Dates: start: 20120201, end: 20120207
  29. MK-8908 [Suspect]
     Dosage: UNK UNK, Unknown
     Route: 048
     Dates: start: 20120208, end: 20120214
  30. MK-8908 [Suspect]
     Dosage: UNK UNK, Unknown
     Route: 048
     Dates: start: 20120209, end: 20120215
  31. MK-8908 [Suspect]
     Dosage: UNK UNK, Unknown
     Route: 048
     Dates: start: 20120215, end: 20120221
  32. MK-8908 [Suspect]
     Dosage: UNK UNK, Unknown
     Route: 048
     Dates: start: 20120216, end: 20120222
  33. MK-8908 [Suspect]
     Dosage: UNK UNK, Unknown
     Route: 048
     Dates: start: 20120222, end: 20120228
  34. MK-8908 [Suspect]
     Dosage: UNK UNK, Unknown
     Route: 048
     Dates: start: 20120223, end: 20120229
  35. MK-8908 [Suspect]
     Dosage: UNK UNK, Unknown
     Route: 048
     Dates: start: 20120229, end: 20120306
  36. MK-8908 [Suspect]
     Dosage: UNK UNK, Unknown
     Route: 048
     Dates: start: 20120301, end: 20120307
  37. MK-8908 [Suspect]
     Dosage: UNK UNK, Unknown
     Route: 048
     Dates: start: 20120307, end: 20120313
  38. MK-8908 [Suspect]
     Dosage: UNK UNK, Unknown
     Route: 048
     Dates: start: 20120308, end: 20120314
  39. MK-8908 [Suspect]
     Dosage: UNK UNK, Unknown
     Route: 048
     Dates: start: 20120314, end: 20120320
  40. MK-8908 [Suspect]
     Dosage: UNK UNK, Unknown
     Route: 048
     Dates: start: 20120315, end: 20120321
  41. MK-8908 [Suspect]
     Dosage: UNK UNK, Unknown
     Route: 048
     Dates: start: 20120321, end: 20120327
  42. MK-8908 [Suspect]
     Dosage: UNK UNK, Unknown
     Route: 048
     Dates: start: 20120322, end: 20120327
  43. MK-8908 [Suspect]
     Dosage: UNK UNK, Unknown
     Route: 048
     Dates: start: 20120328, end: 20120418
  44. MK-8908 [Suspect]
     Dosage: UNK UNK, Unknown
     Route: 048
     Dates: start: 20120328, end: 20120418
  45. INVESTIGATIONAL DRUG [Suspect]
     Indication: CHRONIC HEPATITIS C
     Dosage: 300 mg, BID
     Route: 065
     Dates: start: 20120104, end: 20120327
  46. NORVASC [Concomitant]
     Indication: HYPERTENSION
     Dosage: UPDATE (29APR2012): STOP DATE
     Route: 048
     Dates: start: 20111205, end: 20120418
  47. MEVALOTIN [Concomitant]
     Indication: HYPERLIPIDAEMIA
     Dosage: TOTAL DAILY DOSE: 10 MG UPDATE (29APR2012): STOP DATE
     Route: 048
     Dates: start: 20111205, end: 20120418
  48. CALONAL [Concomitant]
     Indication: PYREXIA
     Dosage: 600 mg, PRN
     Route: 048
     Dates: start: 20120123
  49. ALESION [Concomitant]
     Indication: RHINITIS ALLERGIC
     Dosage: UPDATE (29APR2012): STOP DATE
     Route: 048
     Dates: start: 20120126, end: 20120418
  50. TERRACORTRIL (HYDROCORTISONE (+) OXYTETRACYCLINE HYDROCHLORIDE) [Concomitant]
     Indication: DRY SKIN
     Dosage: UNK UNK, PRN
     Route: 062
     Dates: start: 20120123
  51. ZYLORIC [Concomitant]
     Indication: BLOOD URIC ACID DECREASED
     Dosage: UPDATE (29APR2012): STOP DATE
     Route: 048
     Dates: start: 20120321, end: 20120418
  52. ROPION [Concomitant]
     Indication: PYREXIA
     Dosage: UPDATE (29-APR-2012)
     Route: 042
     Dates: start: 20120425, end: 20120425
  53. ZYLORIC [Concomitant]
     Indication: HYPERURICAEMIA
     Dosage: UPDATE (29-APR-2012)
     Route: 048
     Dates: start: 20120426
  54. NORVASC [Concomitant]
     Indication: HYPERTENSION
     Dosage: UPDATE (29-APR-2012)
     Route: 048
     Dates: start: 20120426
  55. MEVALOTIN [Concomitant]
     Indication: HYPERLIPIDAEMIA
     Dosage: UPDATE (29-APR-2012)
     Route: 048
     Dates: start: 20120426

REACTIONS (2)
  - Appendicitis [Recovered/Resolved]
  - Pneumonia aspiration [Recovered/Resolved]
